FAERS Safety Report 7636947-2 (Version None)
Quarter: 2011Q3

REPORT INFORMATION
  Report Type: 
  Country: None (occurrence: None)
  Receive Date: 20110726
  Receipt Date: 20110719
  Transmission Date: 20111222
  Serious: Yes (Hospitalization)
  Sender: FDA-Public Use
  Company Number: JP-CEPHALON-2011003856

PATIENT
  Age: 67 Year
  Sex: Male
  Weight: 70 kg

DRUGS (10)
  1. BENDAMUSTINE HCL [Suspect]
     Route: 042
     Dates: start: 20110426, end: 20110427
  2. BENDAMUSTINE HCL [Suspect]
     Route: 042
     Dates: start: 20110316, end: 20110317
  3. DOXAZOSIN MESYLATE [Concomitant]
  4. METFORMIN HYDROCHLORIDE [Concomitant]
  5. OXYCODONE HYDROCHLORIDE [Concomitant]
  6. RITUXIMAB [Concomitant]
     Dates: start: 20110206
  7. NIFEDIPINE [Concomitant]
  8. BENDAMUSTINE HCL [Suspect]
     Indication: B-CELL LYMPHOMA
     Route: 042
     Dates: start: 20110209, end: 20110210
  9. ALLOPURINOL [Concomitant]
  10. OMEPRAZOLE [Concomitant]

REACTIONS (1)
  - CELLULITIS [None]
